FAERS Safety Report 12587346 (Version 1)
Quarter: 2016Q3

REPORT INFORMATION
  Report Type: Spontaneous
  Country: GB (occurrence: GB)
  Receive Date: 20160725
  Receipt Date: 20160725
  Transmission Date: 20161109
  Serious: Yes (Disabling)
  Sender: FDA-Public Use
  Company Number: GB-JNJFOC-20160709903

PATIENT
  Age: 35 Year
  Sex: Female
  Weight: 67.12 kg

DRUGS (2)
  1. IBUPROFEN. [Suspect]
     Active Substance: IBUPROFEN
     Route: 048
  2. IBUPROFEN. [Suspect]
     Active Substance: IBUPROFEN
     Indication: PRODUCT USED FOR UNKNOWN INDICATION
     Dosage: ^4^
     Route: 048
     Dates: start: 20120220

REACTIONS (6)
  - Malaise [Unknown]
  - Axillary pain [Unknown]
  - Fatigue [Unknown]
  - Groin pain [Unknown]
  - Breast pain [Recovered/Resolved with Sequelae]
  - Rash [Unknown]

NARRATIVE: CASE EVENT DATE: 20120220
